FAERS Safety Report 5593858-4 (Version None)
Quarter: 2007Q4

REPORT INFORMATION
  Report Type: 
  Country: None (occurrence: None)
  Receive Date: 20071218
  Receipt Date: 20070503
  Transmission Date: 20080405
  Serious: Yes (Other)
  Sender: FDA-Public Use
  Company Number: 2007036434

PATIENT
  Sex: Male

DRUGS (2)
  1. BEXTRA [Suspect]
     Indication: ARTHRITIS
     Dosage: (1 D)
     Dates: start: 20020808
  2. BEXTRA [Suspect]
     Indication: PAIN
     Dosage: (1 D)
     Dates: start: 20020808

REACTIONS (1)
  - MYOCARDIAL INFARCTION [None]
